FAERS Safety Report 7336281-4 (Version None)
Quarter: 2011Q1

REPORT INFORMATION
  Report Type: 
  Country: None (occurrence: None)
  Receive Date: 20110307
  Receipt Date: 20110224
  Transmission Date: 20110831
  Serious: Yes (Death)
  Sender: FDA-Public Use
  Company Number: AT-ACTELION-A-CH2011-45530

PATIENT
  Sex: Female
  Weight: 45 kg

DRUGS (6)
  1. REVATIO [Concomitant]
  2. REMODULIN [Concomitant]
  3. CORTISON [Concomitant]
  4. CELLCEPT [Concomitant]
  5. TRACLEER [Suspect]
     Indication: PULMONARY ARTERIAL HYPERTENSION
     Dosage: 125 MG, BID
     Route: 048
     Dates: start: 20090401
  6. TRACLEER [Suspect]
     Dosage: 62.5 MG, BID
     Route: 048
     Dates: start: 20090301, end: 20090401

REACTIONS (4)
  - CARDIAC FAILURE [None]
  - PYREXIA [None]
  - TACHYCARDIA [None]
  - ASTHENIA [None]
